FAERS Safety Report 7153158-8 (Version None)
Quarter: 2010Q4

REPORT INFORMATION
  Report Type: 
  Country: None (occurrence: None)
  Receive Date: 20101208
  Receipt Date: 20101208
  Transmission Date: 20110411
  Serious: Yes (Death)
  Sender: FDA-Public Use
  Company Number: None

PATIENT
  Age: 83 Year
  Sex: Female

DRUGS (13)
  1. REVLIMID [Suspect]
     Indication: MULTIPLE MYELOMA
     Dosage: 10MG DIALY 21D/28DORALLY
     Route: 048
     Dates: start: 20090409, end: 20090911
  2. REVLIMID [Suspect]
     Indication: MULTIPLE MYELOMA
     Dosage: 10MG DIALY 21D/28DORALLY
     Route: 048
     Dates: start: 20100301
  3. REVLIMID [Concomitant]
  4. PROCIT [Concomitant]
  5. PERCOCET [Concomitant]
  6. ATENOLOL [Concomitant]
  7. INSULIN [Concomitant]
  8. ZESTRIL [Concomitant]
  9. PHENYTOIN [Concomitant]
  10. GLIPIZIDE [Concomitant]
  11. CALCITRIOL [Concomitant]
  12. NORVASC [Concomitant]
  13. ZOCOR [Concomitant]

REACTIONS (1)
  - HAEMOGLOBIN DECREASED [None]
